FAERS Safety Report 19427541 (Version 3)
Quarter: 2021Q3

REPORT INFORMATION
  Report Type: Report from Study
  Country: None (occurrence: US)
  Receive Date: 20210617
  Receipt Date: 20210702
  Transmission Date: 20211014
  Serious: Yes (Hospitalization, Other)
  Sender: FDA-Public Use
  Company Number: US-ABBVIE-21K-163-3832294-00

PATIENT
  Sex: Male
  Weight: 94.43 kg

DRUGS (1)
  1. RINVOQ [Suspect]
     Active Substance: UPADACITINIB
     Indication: RHEUMATOID ARTHRITIS
     Dosage: ?MAR?2021 OR ?APR?2021
     Route: 048
     Dates: start: 202103

REACTIONS (4)
  - Intracardiac thrombus [Recovered/Resolved]
  - Rheumatoid arthritis [Unknown]
  - Heart valve incompetence [Not Recovered/Not Resolved]
  - Type 2 diabetes mellitus [Not Recovered/Not Resolved]

NARRATIVE: CASE EVENT DATE: 2021
